FAERS Safety Report 12887140 (Version 5)
Quarter: 2017Q2

REPORT INFORMATION
  Report Type: Spontaneous
  Country: US (occurrence: US)
  Receive Date: 20161026
  Receipt Date: 20170517
  Transmission Date: 20170830
  Serious: No
  Sender: FDA-Public Use
  Company Number: US-ACTELION-A-NJ2016-144490

PATIENT
  Age: 72 Year
  Sex: Male
  Weight: 60.77 kg

DRUGS (5)
  1. OPSUMIT [Suspect]
     Active Substance: MACITENTAN
     Indication: PULMONARY HYPERTENSION
     Dosage: 10 MG, QD
     Route: 048
     Dates: start: 20150227
  2. UPTRAVI [Suspect]
     Active Substance: SELEXIPAG
     Dosage: 1600 MCG, BID
     Route: 048
  3. UPTRAVI [Suspect]
     Active Substance: SELEXIPAG
     Indication: PULMONARY HYPERTENSION
     Dosage: 1200 MCG, BID
     Route: 048
     Dates: start: 20160224
  4. UPTRAVI [Suspect]
     Active Substance: SELEXIPAG
     Dosage: 1400 MCG, BID
     Route: 048
  5. SILDENAFIL. [Concomitant]
     Active Substance: SILDENAFIL

REACTIONS (14)
  - Headache [Unknown]
  - Upper respiratory tract infection [Unknown]
  - Flatulence [Unknown]
  - Diarrhoea [Unknown]
  - Oedema peripheral [Unknown]
  - Listless [Unknown]
  - Migraine [Unknown]
  - Oedema [Recovering/Resolving]
  - Asthenia [Unknown]
  - Exercise tolerance decreased [Unknown]
  - Pain in jaw [Unknown]
  - Dyspepsia [Unknown]
  - Viral upper respiratory tract infection [Unknown]
  - Feeling abnormal [Recovering/Resolving]
